FAERS Safety Report 14770009 (Version 2)
Quarter: 2018Q3

REPORT INFORMATION
  Report Type: Spontaneous
  Country: IT (occurrence: IT)
  Receive Date: 20180417
  Receipt Date: 20180702
  Transmission Date: 20181010
  Serious: Yes (Other)
  Sender: FDA-Public Use
  Company Number: IT-TEVA-2018-IT-880787

PATIENT
  Age: 40 Year
  Sex: Female

DRUGS (1)
  1. LORAZEPAM. [Suspect]
     Active Substance: LORAZEPAM
     Route: 065

REACTIONS (1)
  - Poisoning [Recovering/Resolving]

NARRATIVE: CASE EVENT DATE: 20171215
